FAERS Safety Report 16831907 (Version 1)
Quarter: 2019Q3

REPORT INFORMATION
  Report Type: Spontaneous
  Country: JP (occurrence: JP)
  Receive Date: 20190920
  Receipt Date: 20190920
  Transmission Date: 20191005
  Serious: Yes (Other)
  Sender: FDA-Public Use
  Company Number: JP-AUROBINDO-AUR-APL-2019-040298

PATIENT
  Age: 65 Year
  Sex: Male

DRUGS (4)
  1. PANVITAN [Concomitant]
     Active Substance: VITAMINS
     Indication: PROPHYLAXIS
     Dosage: UNK
     Route: 065
     Dates: start: 20180329
  2. FOLOTYN [Suspect]
     Active Substance: PRALATREXATE
     Indication: PERIPHERAL T-CELL LYMPHOMA UNSPECIFIED STAGE III
     Dosage: 30 MILLIGRAM/SQ. METER
     Route: 042
  3. FORODESINE HYDROCHLORIDE [Suspect]
     Active Substance: FORODESINE HYDROCHLORIDE
     Indication: PERIPHERAL T-CELL LYMPHOMA UNSPECIFIED STAGE III
     Dosage: 400 MILLIGRAM, ONCE A DAY
     Route: 048
     Dates: start: 20170720, end: 20180404
  4. CRAVIT [Concomitant]
     Active Substance: LEVOFLOXACIN
     Indication: PERIPHERAL T-CELL LYMPHOMA UNSPECIFIED
     Dosage: UNK
     Dates: start: 20180315

REACTIONS (19)
  - Stomatitis [Recovering/Resolving]
  - Abdominal pain [Recovering/Resolving]
  - Nasopharyngitis [Recovered/Resolved]
  - Lymphopenia [Not Recovered/Not Resolved]
  - Insomnia [Recovered/Resolved]
  - Sepsis [Unknown]
  - Neutrophil count decreased [Not Recovered/Not Resolved]
  - Hypoaesthesia [Not Recovered/Not Resolved]
  - Platelet count decreased [Unknown]
  - Urinary retention [Recovering/Resolving]
  - Rash [Recovering/Resolving]
  - Malignant neoplasm progression [Unknown]
  - Abdominal distension [Recovered/Resolved]
  - Cytomegalovirus infection [Recovered/Resolved]
  - Pyrexia [Unknown]
  - Malaise [Recovering/Resolving]
  - Lymphocyte morphology abnormal [Unknown]
  - Laryngeal pain [Recovering/Resolving]
  - Cheilitis [Recovered/Resolved]

NARRATIVE: CASE EVENT DATE: 20170801
